FAERS Safety Report 26203320 (Version 1)
Quarter: 2025Q4

REPORT INFORMATION
  Report Type: Spontaneous
  Country: US (occurrence: None)
  Receive Date: 20251223
  Receipt Date: 20251223
  Transmission Date: 20260118
  Serious: Yes (Hospitalization)
  Sender: FDA-CTU
  Company Number: None

PATIENT
  Age: 73 Year
  Sex: Male

DRUGS (2)
  1. TAVNEOS [Suspect]
     Active Substance: AVACOPAN
     Route: 048
     Dates: start: 20250723
  2. TAVNEOS [Concomitant]
     Active Substance: AVACOPAN
     Dates: start: 20250723

REACTIONS (10)
  - Therapy interrupted [None]
  - Dialysis [None]
  - Malaise [None]
  - Gastrointestinal infection [None]
  - Fall [None]
  - Gastric perforation [None]
  - Colitis [None]
  - Pulmonary embolism [None]
  - Haemorrhage [None]
  - Thrombosis [None]

NARRATIVE: CASE EVENT DATE: 20251223
